FAERS Safety Report 6370046-5 (Version None)
Quarter: 2009Q3

REPORT INFORMATION
  Report Type: 
  Country: None (occurrence: None)
  Receive Date: 20090923
  Receipt Date: 20070601
  Transmission Date: 20100115
  Serious: Yes (Other)
  Sender: FDA-Public Use
  Company Number: US-ASTRAZENECA-2006UW21315

PATIENT
  Age: 17779 Day
  Sex: Male
  Weight: 81.6 kg

DRUGS (20)
  1. SEROQUEL [Suspect]
     Indication: DEPRESSION
     Route: 048
     Dates: start: 20050101, end: 20060101
  2. SEROQUEL [Suspect]
     Indication: SCHIZOPHRENIA
     Route: 048
     Dates: start: 20050101, end: 20060101
  3. SEROQUEL [Suspect]
     Dosage: 25 TO 200 MG
     Route: 048
     Dates: start: 20050423
  4. SEROQUEL [Suspect]
     Dosage: 25 TO 200 MG
     Route: 048
     Dates: start: 20050423
  5. GEODON [Concomitant]
     Dates: start: 20060101
  6. HALDOL [Concomitant]
     Dates: start: 20060101
  7. KETOROLAC TROMETHAMINE [Concomitant]
  8. THIAMINE HCL [Concomitant]
     Route: 048
  9. FOLIC ACID [Concomitant]
     Route: 048
  10. PIOGLITAZONE [Concomitant]
  11. SERTRALINE HCL [Concomitant]
     Route: 048
  12. INSULIN [Concomitant]
     Dosage: 1 UNIT
  13. ZOLPIDEM [Concomitant]
     Route: 048
  14. EFFEXOR [Concomitant]
     Dosage: 75 TO 150 MG
     Route: 048
  15. MOTRIN [Concomitant]
     Route: 048
  16. ABILIFY [Concomitant]
     Route: 048
  17. CHLORDIAZEPOXIDE [Concomitant]
  18. VALSARTAN [Concomitant]
  19. LORAZEPAM [Concomitant]
     Route: 048
  20. LECITHIN [Concomitant]
     Route: 048

REACTIONS (4)
  - DIABETES MELLITUS [None]
  - INTERVERTEBRAL DISC DEGENERATION [None]
  - SPONDYLOLISTHESIS [None]
  - SUICIDAL IDEATION [None]
